FAERS Safety Report 8276326-0 (Version None)
Quarter: 2012Q2

REPORT INFORMATION
  Report Type: 
  Country: None (occurrence: None)
  Receive Date: 20120412
  Receipt Date: 20120405
  Transmission Date: 20120825
  Serious: Yes (Other)
  Sender: FDA-Public Use
  Company Number: PHEH2012US007601

PATIENT
  Sex: Female
  Weight: 108.84 kg

DRUGS (6)
  1. TEGRETOL [Suspect]
     Indication: BIPOLAR DISORDER
     Dosage: 400 MG, QD
     Route: 048
     Dates: start: 20050101
  2. ZOCOR [Concomitant]
     Indication: BLOOD CHOLESTEROL INCREASED
  3. VALTREX [Concomitant]
  4. EFFEXOR XR [Suspect]
     Indication: DEPRESSION
     Dosage: 150 MG, QD
     Route: 048
     Dates: start: 20050101
  5. LYRICA [Suspect]
     Indication: NEURALGIA
     Dosage: 50 MG, BID
     Route: 048
     Dates: start: 20120228
  6. ATENOLOL [Concomitant]
     Indication: HYPERTENSION
     Dosage: 25 MG, UNK

REACTIONS (6)
  - DRY EYE [None]
  - NASAL DRYNESS [None]
  - LIP DRY [None]
  - LUMBAR SPINAL STENOSIS [None]
  - NEURALGIA [None]
  - CONSTIPATION [None]
